FAERS Safety Report 5277236-3 (Version None)
Quarter: 2007Q1

REPORT INFORMATION
  Report Type: 
  Country: None (occurrence: None)
  Receive Date: 20070327
  Receipt Date: 20070315
  Transmission Date: 20070707
  Serious: Yes (Hospitalization, Other)
  Sender: FDA-Public Use
  Company Number: PHBS2007BE04727

PATIENT
  Age: 60 Year
  Sex: Female

DRUGS (3)
  1. MYFORTIC [Suspect]
     Indication: RENAL TRANSPLANT
     Dosage: 360 MG, TID
     Route: 048
     Dates: start: 20060901
  2. PROGRAF [Concomitant]
     Indication: RENAL TRANSPLANT
     Dosage: 2 MG, BID
     Dates: start: 20000101
  3. MEDROL [Concomitant]
     Indication: RENAL TRANSPLANT
     Dosage: 4 MG, QD

REACTIONS (4)
  - COLITIS ULCERATIVE [None]
  - CROHN'S DISEASE [None]
  - DIARRHOEA [None]
  - GASTRIC ULCER [None]
